FAERS Safety Report 9288416 (Version 1)
Quarter: 2013Q2

REPORT INFORMATION
  Report Type: Spontaneous
  Country: US (occurrence: None)
  Receive Date: 20130513
  Receipt Date: 20130513
  Transmission Date: 20140414
  Serious: No
  Sender: FDA-Public Use
  Company Number: None

PATIENT
  Age: 12 Year
  Sex: Male
  Weight: 72.58 kg

DRUGS (2)
  1. BUPROPION [Suspect]
     Indication: SEASONAL AFFECTIVE DISORDER
     Route: 048
     Dates: start: 20090801, end: 20110901
  2. BUPROPION [Suspect]
     Indication: SEASONAL AFFECTIVE DISORDER
     Route: 048
     Dates: start: 20110901, end: 20130509

REACTIONS (5)
  - Product substitution issue [None]
  - Product quality issue [None]
  - Drug effect decreased [None]
  - General symptom [None]
  - Condition aggravated [None]
